FAERS Safety Report 11747706 (Version 4)
Quarter: 2015Q4

REPORT INFORMATION
  Report Type: Spontaneous
  Country: JP (occurrence: JP)
  Receive Date: 20151117
  Receipt Date: 20151220
  Transmission Date: 20160304
  Serious: Yes (Hospitalization, Other)
  Sender: FDA-Public Use
  Company Number: JP-UCBSA-2015035549

PATIENT
  Age: 21 Year
  Sex: Male

DRUGS (4)
  1. EXCEGRAN [Suspect]
     Active Substance: ZONISAMIDE
     Indication: PRODUCT USED FOR UNKNOWN INDICATION
     Dosage: UNK
     Route: 048
  2. DOGMATYL [Suspect]
     Active Substance: SULPIRIDE
     Indication: PRODUCT USED FOR UNKNOWN INDICATION
     Dosage: 50 MG, 2X/DAY (BID)
     Route: 048
  3. KEPPRA [Suspect]
     Active Substance: LEVETIRACETAM
     Indication: PARTIAL SEIZURES
     Dosage: 1000 MG, 2X/DAY (BID)
     Route: 048
  4. SEROQUEL [Suspect]
     Active Substance: QUETIAPINE FUMARATE
     Indication: PRODUCT USED FOR UNKNOWN INDICATION
     Dosage: DAILY DOSE: 50 MG
     Route: 048

REACTIONS (8)
  - Creatinine urine abnormal [Recovering/Resolving]
  - Dehydration [Recovered/Resolved]
  - Blood urea abnormal [Recovering/Resolving]
  - Cerebral haemorrhage [Unknown]
  - Feeding disorder [Unknown]
  - Hydronephrosis [Unknown]
  - Calculus urinary [Unknown]
  - Renal cyst [Unknown]
